FAERS Safety Report 24894537 (Version 1)
Quarter: 2025Q1

REPORT INFORMATION
  Report Type: Other
  Country: US (occurrence: US)
  Receive Date: 20250128
  Receipt Date: 20250128
  Transmission Date: 20250409
  Serious: Yes (Other)
  Sender: TRAVERE THERAPEUTICS
  Company Number: US-TRAVERE-2025TVT00099

PATIENT
  Sex: Male

DRUGS (1)
  1. FILSPARI [Suspect]
     Active Substance: SPARSENTAN
     Indication: IgA nephropathy
     Route: 048
     Dates: start: 20241224, end: 20250114

REACTIONS (6)
  - Renal impairment [Unknown]
  - Blood potassium increased [Unknown]
  - Laboratory test abnormal [Unknown]
  - Protein total abnormal [Unknown]
  - Peripheral swelling [Unknown]
  - Drug ineffective [Unknown]
